FAERS Safety Report 6464462-0 (Version None)
Quarter: 2009Q4

REPORT INFORMATION
  Report Type: 
  Country: None (occurrence: None)
  Receive Date: 20091124
  Receipt Date: 20091109
  Transmission Date: 20100525
  Serious: Yes (Disabling, Other)
  Sender: FDA-Public Use
  Company Number: 20090545

PATIENT
  Age: 41 Year
  Sex: Female

DRUGS (2)
  1. DROPERIDOL [Suspect]
     Indication: NAUSEA
     Dosage: INJECTION NOS
  2. HORMONE REPLACEMENT THERAPY [Concomitant]

REACTIONS (5)
  - DYSTONIA [None]
  - MUSCLE FATIGUE [None]
  - NECK PAIN [None]
  - OROPHARYNGEAL DISCOMFORT [None]
  - TREATMENT FAILURE [None]
